FAERS Safety Report 13123711 (Version 2)
Quarter: 2017Q1

REPORT INFORMATION
  Report Type: Report from Study
  Country: US (occurrence: US)
  Receive Date: 20170117
  Receipt Date: 20170301
  Transmission Date: 20170428
  Serious: Yes (Hospitalization, Other)
  Sender: FDA-Public Use
  Company Number: US-BIOGEN-2017BI00342620

PATIENT
  Age: 56 Year
  Sex: Male

DRUGS (4)
  1. AVONEX [Suspect]
     Active Substance: INTERFERON BETA-1A
     Route: 030
     Dates: start: 20170221
  2. AVONEX [Suspect]
     Active Substance: INTERFERON BETA-1A
     Indication: MULTIPLE SCLEROSIS
     Route: 030
     Dates: start: 20120529, end: 20160630
  3. KEPPRA [Concomitant]
     Active Substance: LEVETIRACETAM
     Indication: SEIZURE
     Route: 065
  4. AVONEX [Suspect]
     Active Substance: INTERFERON BETA-1A
     Route: 030
     Dates: end: 201607

REACTIONS (10)
  - Foot fracture [Recovered/Resolved]
  - Lower limb fracture [Not Recovered/Not Resolved]
  - Road traffic accident [Recovered/Resolved]
  - Tooth avulsion [Not Recovered/Not Resolved]
  - Wound infection staphylococcal [Recovered/Resolved]
  - Staring [Recovered/Resolved]
  - Seizure [Recovered/Resolved]
  - Upper limb fracture [Recovered/Resolved]
  - Gastrointestinal injury [Recovered/Resolved]
  - Coma [Recovered/Resolved]

NARRATIVE: CASE EVENT DATE: 201607
